FAERS Safety Report 6351277-7 (Version None)
Quarter: 2009Q3

REPORT INFORMATION
  Report Type: 
  Country: None (occurrence: None)
  Receive Date: 20090912
  Receipt Date: 20090622
  Transmission Date: 20100115
  Serious: No
  Sender: FDA-Public Use
  Company Number: US-ABBOTT-07P-163-0378589-00

PATIENT
  Sex: Male
  Weight: 38.59 kg

DRUGS (6)
  1. HUMIRA [Suspect]
     Indication: CROHN'S DISEASE
     Route: 058
     Dates: start: 20070826
  2. HUMIRA [Suspect]
     Route: 058
     Dates: start: 20070825, end: 20070825
  3. HUMIRA [Suspect]
     Dosage: HALF INJECTION
     Route: 058
     Dates: start: 20070820, end: 20070820
  4. HUMIRA [Suspect]
     Route: 058
     Dates: start: 20070806, end: 20070806
  5. HUMIRA [Suspect]
     Route: 058
     Dates: start: 20070730, end: 20070730
  6. VITAMIN TAB [Concomitant]
     Indication: DRUG USE FOR UNKNOWN INDICATION

REACTIONS (3)
  - INCORRECT DOSE ADMINISTERED [None]
  - INJECTION SITE IRRITATION [None]
  - INJECTION SITE PAIN [None]
